FAERS Safety Report 7285903-5 (Version None)
Quarter: 2011Q1

REPORT INFORMATION
  Report Type: 
  Country: None (occurrence: None)
  Receive Date: 20110210
  Receipt Date: 20110204
  Transmission Date: 20110831
  Serious: Yes (Hospitalization)
  Sender: FDA-Public Use
  Company Number: AR-SANOFI-AVENTIS-200920159GDDC

PATIENT
  Age: 71 Year
  Sex: Male
  Weight: 63 kg

DRUGS (6)
  1. BLINDED THERAPY [Suspect]
     Route: 042
     Dates: start: 20090218, end: 20090218
  2. DOCETAXEL [Suspect]
     Route: 042
  3. IBUPROFEN [Concomitant]
     Dosage: DOSE AS USED: 400 MG Q12H
     Route: 048
  4. DOCETAXEL [Suspect]
     Dosage: DOSE AS USED: UNK DOSE UNIT: 75 MG/M**2
     Route: 042
     Dates: start: 20090218, end: 20090218
  5. PREDNISONE TAB [Suspect]
     Dosage: DOSE AS USED: UNK DOSE UNIT: 5 MG
     Route: 048
     Dates: start: 20090218, end: 20090824
  6. BLINDED THERAPY [Suspect]
     Dosage: DOSE UNIT: 6 MG/KG
     Route: 042
     Dates: start: 20090904, end: 20090904

REACTIONS (1)
  - LEUKOENCEPHALOPATHY [None]
